FAERS Safety Report 25636252 (Version 1)
Quarter: 2025Q3

REPORT INFORMATION
  Report Type: Spontaneous
  Country: US (occurrence: US)
  Receive Date: 20250803
  Receipt Date: 20250803
  Transmission Date: 20251021
  Serious: Yes (Other)
  Sender: DR REDDYS
  Company Number: US-DRL-USA-USA/2025/07/011553

PATIENT
  Age: 79 Year
  Sex: Female

DRUGS (3)
  1. APREMILAST [Suspect]
     Active Substance: APREMILAST
     Indication: Lichenoid keratosis
  2. DUPILUMAB [Concomitant]
     Active Substance: DUPILUMAB
     Indication: Lichenoid keratosis
  3. PREDNISONE [Concomitant]
     Active Substance: PREDNISONE
     Indication: Lichenoid keratosis

REACTIONS (1)
  - Drug ineffective for unapproved indication [Unknown]
